FAERS Safety Report 6617865-5 (Version None)
Quarter: 2010Q1

REPORT INFORMATION
  Report Type: 
  Country: None (occurrence: None)
  Receive Date: 20100308
  Receipt Date: 20100224
  Transmission Date: 20100710
  Serious: Yes (Hospitalization)
  Sender: FDA-Public Use
  Company Number: JP-SANOFI-AVENTIS-2010SA005937

PATIENT
  Age: 78 Year
  Sex: Male
  Weight: 64 kg

DRUGS (10)
  1. CLOPIDOGREL BISULFATE [Suspect]
     Indication: ANGINA PECTORIS
     Route: 048
     Dates: start: 20100124, end: 20100124
  2. CLOPIDOGREL BISULFATE [Suspect]
     Route: 048
     Dates: start: 20100124, end: 20100124
  3. CLOPIDOGREL BISULFATE [Suspect]
     Route: 048
     Dates: start: 20100125, end: 20100128
  4. CLOPIDOGREL BISULFATE [Suspect]
     Route: 048
     Dates: start: 20100125, end: 20100128
  5. CLOPIDOGREL BISULFATE [Suspect]
     Route: 048
     Dates: start: 20100201, end: 20100208
  6. CLOPIDOGREL BISULFATE [Suspect]
     Route: 048
     Dates: start: 20100201, end: 20100208
  7. ASPIRIN [Suspect]
     Route: 048
     Dates: start: 20100116, end: 20100130
  8. ASPIRIN [Suspect]
     Route: 048
     Dates: start: 20100201
  9. TAKEPRON [Concomitant]
     Indication: GASTRIC DISORDER
     Route: 048
     Dates: start: 20100116
  10. ITAVASTATIN [Concomitant]
     Route: 048
     Dates: start: 20100116

REACTIONS (1)
  - PERICARDIAL EFFUSION [None]
